FAERS Safety Report 5789078-0 (Version None)
Quarter: 2008Q2

REPORT INFORMATION
  Report Type: 
  Country: None (occurrence: None)
  Receive Date: 20080626
  Receipt Date: 20071108
  Transmission Date: 20081010
  Serious: No
  Sender: FDA-Public Use
  Company Number: US-ASTRAZENECA-2007UW25941

PATIENT
  Age: 80 Year
  Sex: Female

DRUGS (2)
  1. PULMICORT-100 [Suspect]
     Route: 055
  2. DUONEB [Concomitant]

REACTIONS (3)
  - DIARRHOEA [None]
  - FATIGUE [None]
  - VISION BLURRED [None]
